FAERS Safety Report 11936819 (Version 1)
Quarter: 2016Q1

REPORT INFORMATION
  Report Type: Spontaneous
  Country: IE (occurrence: IE)
  Receive Date: 20160121
  Receipt Date: 20160121
  Transmission Date: 20160526
  Serious: Yes (Hospitalization)
  Sender: FDA-Public Use
  Company Number: IE-FERRINGPH-2015FE04923

PATIENT

DRUGS (1)
  1. DESMOSPRAY [Suspect]
     Active Substance: DESMOPRESSIN
     Indication: ENURESIS
     Dosage: 20 ?G, UNK
     Route: 045

REACTIONS (4)
  - Seizure [Recovered/Resolved]
  - Hyponatraemia [Recovered/Resolved]
  - Blood urea increased [Recovered/Resolved]
  - Blood creatinine increased [Recovered/Resolved]

NARRATIVE: CASE EVENT DATE: 20151122
